FAERS Safety Report 12966217 (Version 1)
Quarter: 2016Q4

REPORT INFORMATION
  Report Type: Report from Study
  Country: US (occurrence: US)
  Receive Date: 20161122
  Receipt Date: 20161122
  Transmission Date: 20170207
  Serious: Yes (Hospitalization)
  Sender: FDA-Public Use
  Company Number: US-ACTELION-A-US2016-145896

PATIENT
  Age: 67 Year
  Sex: Male

DRUGS (4)
  1. CRESTOR [Concomitant]
     Active Substance: ROSUVASTATIN CALCIUM
  2. MVI [Concomitant]
     Active Substance: VITAMINS
  3. TRACLEER [Suspect]
     Active Substance: BOSENTAN
     Indication: PULMONARY ARTERIAL HYPERTENSION
     Dosage: 125 MG, BID
     Route: 048
     Dates: start: 20121212
  4. ASA [Concomitant]
     Active Substance: ASPIRIN

REACTIONS (3)
  - Memory impairment [Unknown]
  - Hip arthroplasty [Unknown]
  - Drug dose omission [Unknown]
